FAERS Safety Report 6342188-1 (Version None)
Quarter: 2009Q3

REPORT INFORMATION
  Report Type: 
  Country: None (occurrence: None)
  Receive Date: 20090903
  Receipt Date: 20090903
  Transmission Date: 20100115
  Serious: No
  Sender: FDA-Public Use
  Company Number: None

PATIENT
  Age: 59 Year
  Sex: Female
  Weight: 90.7194 kg

DRUGS (1)
  1. ZICAM LIQUID NASAL GEL ZICAM [Suspect]
     Indication: NASOPHARYNGITIS
     Dosage: ONE SPRAY 2X DAILY NASAL
     Route: 045
     Dates: start: 20090401, end: 20090404

REACTIONS (3)
  - AGEUSIA [None]
  - ANOSMIA [None]
  - PRODUCT QUALITY ISSUE [None]
